FAERS Safety Report 6340732-1 (Version None)
Quarter: 2009Q3

REPORT INFORMATION
  Report Type: 
  Country: None (occurrence: None)
  Receive Date: 20090904
  Receipt Date: 20080929
  Transmission Date: 20100115
  Serious: Yes (Other)
  Sender: FDA-Public Use
  Company Number: US-JNJFOC-20081000118

PATIENT
  Age: 72 Year
  Sex: Female

DRUGS (3)
  1. DORIBAX [Suspect]
     Indication: DRUG USE FOR UNKNOWN INDICATION
     Route: 041
  2. DILANTIN [Concomitant]
     Indication: CONVULSION
     Route: 065
  3. AMIKACIN [Concomitant]
     Route: 065

REACTIONS (1)
  - CONVULSION [None]
